FAERS Safety Report 7075101-2 (Version None)
Quarter: 2010Q4

REPORT INFORMATION
  Report Type: 
  Country: None (occurrence: None)
  Receive Date: 20101029
  Receipt Date: 20100324
  Transmission Date: 20110411
  Serious: No
  Sender: FDA-Public Use
  Company Number: US-WYE-H14183510

PATIENT
  Age: 32 Year
  Sex: Female
  Weight: 90.8 kg

DRUGS (4)
  1. ALAVERT D-12 [Suspect]
     Indication: SNEEZING
     Route: 048
     Dates: start: 20100315, end: 20100316
  2. ALAVERT D-12 [Suspect]
     Indication: RHINORRHOEA
  3. ALAVERT D-12 [Suspect]
     Indication: EYE PRURITUS
  4. ALAVERT D-12 [Suspect]
     Indication: LACRIMATION INCREASED

REACTIONS (2)
  - DRUG EFFECT DECREASED [None]
  - OVERDOSE [None]
